FAERS Safety Report 8463704-X (Version None)
Quarter: 2012Q2

REPORT INFORMATION
  Report Type: 
  Country: None (occurrence: None)
  Receive Date: 20120625
  Receipt Date: 20120615
  Transmission Date: 20120825
  Serious: Yes (Other)
  Sender: FDA-Public Use
  Company Number: US-ABBOTT-12P-163-0946824-00

PATIENT
  Age: 65 Year
  Sex: Male

DRUGS (2)
  1. ZOCOR [Suspect]
     Indication: PRODUCT USED FOR UNKNOWN INDICATION
  2. NIASPAN [Suspect]
     Indication: PRODUCT USED FOR UNKNOWN INDICATION
     Dates: end: 20030101

REACTIONS (3)
  - PNEUMONIA [None]
  - SEVERE ACUTE RESPIRATORY SYNDROME [None]
  - CONVULSION [None]
